FAERS Safety Report 4323863-7 (Version None)
Quarter: 2004Q1

REPORT INFORMATION
  Report Type: 
  Country: None (occurrence: None)
  Receive Date: 20040323
  Receipt Date: 20040309
  Transmission Date: 20041129
  Serious: Yes (Hospitalization)
  Sender: FDA-Public Use
  Company Number: 193878

PATIENT
  Age: 71 Year
  Sex: Female
  Weight: 89.8122 kg

DRUGS (1)
  1. AVONEX [Suspect]
     Indication: MULTIPLE SCLEROSIS

REACTIONS (1)
  - CELLULITIS [None]
